FAERS Safety Report 23529814 (Version 1)
Quarter: 2024Q1

REPORT INFORMATION
  Report Type: Spontaneous
  Country: US (occurrence: US)
  Receive Date: 20240216
  Receipt Date: 20240216
  Transmission Date: 20240410
  Serious: No
  Sender: FDA-Public Use
  Company Number: US-OTSUKA-2023_019277

PATIENT
  Age: 38 Year
  Sex: Male

DRUGS (13)
  1. BUSULFAN [Suspect]
     Active Substance: BUSULFAN
     Indication: Bone marrow conditioning regimen
     Dosage: 70 MG (FROM DAY -6 TO -4)
     Route: 042
  2. BUSULFAN [Suspect]
     Active Substance: BUSULFAN
     Indication: Chemotherapy
  3. BUSULFAN [Suspect]
     Active Substance: BUSULFAN
     Indication: Stem cell transplant
  4. BUSULFAN [Suspect]
     Active Substance: BUSULFAN
     Indication: T-cell lymphoma
  5. THIOTEPA [Concomitant]
     Active Substance: THIOTEPA
     Indication: Bone marrow conditioning regimen
     Dosage: 500 MG (FROM DAY -9 TO -7)
     Route: 042
  6. THIOTEPA [Concomitant]
     Active Substance: THIOTEPA
     Indication: Chemotherapy
  7. THIOTEPA [Concomitant]
     Active Substance: THIOTEPA
     Indication: Stem cell transplant
  8. CYCLOPHOSPHAMIDE [Concomitant]
     Active Substance: CYCLOPHOSPHAMIDE
     Indication: Bone marrow conditioning regimen
     Dosage: 5100 MG (FROM DAY -3 TO -2)
     Route: 042
  9. CYCLOPHOSPHAMIDE [Concomitant]
     Active Substance: CYCLOPHOSPHAMIDE
     Indication: Chemotherapy
  10. CYCLOPHOSPHAMIDE [Concomitant]
     Active Substance: CYCLOPHOSPHAMIDE
     Indication: Stem cell transplant
  11. MESNA [Concomitant]
     Active Substance: MESNA
     Indication: Bone marrow conditioning regimen
     Dosage: UNK (FROM DAY -3 THROUGH DAY -2)
     Route: 042
  12. MESNA [Concomitant]
     Active Substance: MESNA
     Indication: Stem cell transplant
  13. MESNA [Concomitant]
     Active Substance: MESNA
     Indication: Chemotherapy

REACTIONS (1)
  - Product use in unapproved indication [Unknown]
